FAERS Safety Report 11341090 (Version 1)
Quarter: 2015Q3

REPORT INFORMATION
  Report Type: Spontaneous
  Country: US (occurrence: None)
  Receive Date: 20150803
  Receipt Date: 20150803
  Transmission Date: 20151125
  Serious: Yes (Disabling)
  Sender: FDA-Public Use
  Company Number: None

PATIENT
  Age: 67 Year
  Sex: Female
  Weight: 74.39 kg

DRUGS (14)
  1. OXYBUTYNIN CL ER [Suspect]
     Active Substance: OXYBUTYNIN CHLORIDE
     Indication: HYPERTONIC BLADDER
     Dosage: 1 PILL
     Dates: start: 20141030, end: 20150704
  2. GLIMERPIRIDE [Concomitant]
     Active Substance: GLIMEPIRIDE
  3. MYRALAX [Concomitant]
  4. FIBER TABLETS [Concomitant]
  5. BYSTOLIC [Concomitant]
     Active Substance: NEBIVOLOL HYDROCHLORIDE
  6. MULTIVITAMIN [Concomitant]
     Active Substance: VITAMINS
  7. ASPIRIN. [Concomitant]
     Active Substance: ASPIRIN
  8. ATORVASTATIN [Concomitant]
     Active Substance: ATORVASTATIN
  9. METFORMIN [Concomitant]
     Active Substance: METFORMIN HYDROCHLORIDE
  10. COLACE [Concomitant]
     Active Substance: DOCUSATE SODIUM
  11. CLONAZEPAM. [Concomitant]
     Active Substance: CLONAZEPAM
  12. MULTAQ [Concomitant]
     Active Substance: DRONEDARONE
  13. LOSARTAN. [Concomitant]
     Active Substance: LOSARTAN
  14. AMLODIPINE BESYLATE. [Concomitant]
     Active Substance: AMLODIPINE BESYLATE

REACTIONS (6)
  - Apathy [None]
  - Heart rate decreased [None]
  - Peripheral swelling [None]
  - Infrequent bowel movements [None]
  - Fatigue [None]
  - Palpitations [None]

NARRATIVE: CASE EVENT DATE: 20150704
